FAERS Safety Report 5504059-X (Version None)
Quarter: 2007Q4

REPORT INFORMATION
  Report Type: 
  Country: None (occurrence: None)
  Receive Date: 20071030
  Receipt Date: 20070727
  Transmission Date: 20080405
  Serious: No
  Sender: FDA-Public Use
  Company Number: 266011

PATIENT
  Age: 46 Year
  Sex: Male

DRUGS (2)
  1. LEVEMIR [Suspect]
     Indication: INSULIN-REQUIRING TYPE II DIABETES MELLITUS
     Dosage: SUBCUTANEOUS
     Route: 058
     Dates: start: 20070101, end: 20070101
  2. NOVOLIN N [Concomitant]

REACTIONS (4)
  - BLOOD GLUCOSE INCREASED [None]
  - FEELING HOT [None]
  - INJECTION SITE RASH [None]
  - VOMITING [None]
